FAERS Safety Report 21842161 (Version 1)
Quarter: 2023Q1

REPORT INFORMATION
  Report Type: Spontaneous
  Country: US (occurrence: US)
  Receive Date: 20230110
  Receipt Date: 20230110
  Transmission Date: 20230418
  Serious: No
  Sender: FDA-Public Use
  Company Number: US-AMNEAL PHARMACEUTICALS-2022-AMRX-02167

PATIENT
  Age: 66 Year
  Sex: Female
  Weight: 58.957 kg

DRUGS (1)
  1. GUANFACINE [Suspect]
     Active Substance: GUANFACINE
     Indication: Cough
     Dosage: 1 OR 2 TABLETS EVERY 12 HOURS; NOT TO EXCEED 4 TABLETS IN 24 HOURS
     Route: 048
     Dates: start: 20220628

REACTIONS (1)
  - Hypersensitivity [Recovered/Resolved]

NARRATIVE: CASE EVENT DATE: 20220628
